FAERS Safety Report 5622453-3 (Version None)
Quarter: 2008Q1

REPORT INFORMATION
  Report Type: 
  Country: None (occurrence: None)
  Receive Date: 20080211
  Receipt Date: 20080130
  Transmission Date: 20080703
  Serious: Yes (Other)
  Sender: FDA-Public Use
  Company Number: US-PFIZER INC-2008009226

PATIENT
  Age: 24 Year
  Sex: Male
  Weight: 61.2 kg

DRUGS (3)
  1. FLUCONAZOLE [Suspect]
     Route: 048
     Dates: start: 20070629, end: 20070714
  2. BACTRIM [Suspect]
     Indication: PNEUMOCYSTIS JIROVECI PNEUMONIA
     Dosage: TEXT:160MG/800MG
     Route: 048
     Dates: start: 20070630, end: 20070714
  3. BACTRIM [Suspect]
     Indication: LIMB DISCOMFORT

REACTIONS (9)
  - ANAPHYLACTIC REACTION [None]
  - DIARRHOEA [None]
  - DYSPHAGIA [None]
  - FEELING HOT [None]
  - HEADACHE [None]
  - NAUSEA [None]
  - STEVENS-JOHNSON SYNDROME [None]
  - SWELLING [None]
  - VOMITING [None]
